FAERS Safety Report 14378489 (Version 2)
Quarter: 2018Q1

REPORT INFORMATION
  Report Type: Spontaneous
  Country: PL (occurrence: PL)
  Receive Date: 20180112
  Receipt Date: 20180220
  Transmission Date: 20180509
  Serious: Yes (Hospitalization)
  Sender: FDA-Public Use
  Company Number: PL-MERCK KGAA-2039976

PATIENT
  Age: 81 Year
  Sex: Female

DRUGS (17)
  1. FUROSEMIDE. [Suspect]
     Active Substance: FUROSEMIDE
     Route: 065
  2. VITAMIN D [Concomitant]
     Active Substance: CHOLECALCIFEROL
     Route: 065
  3. CIPROFLOXACIN HYDROCHLORIDE. [Suspect]
     Active Substance: CIPROFLOXACIN HYDROCHLORIDE
  4. CARVEDILOL. [Suspect]
     Active Substance: CARVEDILOL
     Route: 065
  5. ENCORTON [Suspect]
     Active Substance: PREDNISONE
     Route: 065
  6. ENCORTON [Suspect]
     Active Substance: PREDNISONE
  7. NADROPARIN [Suspect]
     Active Substance: NADROPARIN
     Route: 065
  8. CARVEDILOL. [Suspect]
     Active Substance: CARVEDILOL
  9. ENCORTON [Suspect]
     Active Substance: PREDNISONE
     Route: 065
  10. CARVEDILOL. [Suspect]
     Active Substance: CARVEDILOL
     Route: 065
  11. AMIODARONE HYDROCHLORIDE. [Suspect]
     Active Substance: AMIODARONE HYDROCHLORIDE
     Route: 065
  12. RIVAROXABAN [Suspect]
     Active Substance: RIVAROXABAN
     Route: 065
  13. PANTOPRAZOLE [Suspect]
     Active Substance: PANTOPRAZOLE
     Route: 065
  14. CALCIUM [Concomitant]
     Active Substance: CALCIUM
     Route: 065
  15. NOVOTHYROX [Suspect]
     Active Substance: LEVOTHYROXINE SODIUM
     Indication: HYPOTHYROIDISM
     Route: 065
  16. CIPROFLOXACIN HYDROCHLORIDE. [Suspect]
     Active Substance: CIPROFLOXACIN HYDROCHLORIDE
     Route: 042
  17. ENCORTON [Suspect]
     Active Substance: PREDNISONE
     Route: 065

REACTIONS (12)
  - Cough [Recovered/Resolved]
  - Ventricular arrhythmia [Unknown]
  - Diarrhoea [Recovering/Resolving]
  - Dyspnoea [Recovered/Resolved]
  - Fatigue [Recovered/Resolved]
  - Pulmonary toxicity [Recovered/Resolved]
  - Oliguria [Unknown]
  - Atrial fibrillation [Unknown]
  - Exercise tolerance decreased [Recovered/Resolved]
  - Palpitations [Recovered/Resolved]
  - Oedema peripheral [Unknown]
  - Pneumonia [Recovered/Resolved]
